FAERS Safety Report 20379409 (Version 2)
Quarter: 2022Q1

REPORT INFORMATION
  Report Type: Other
  Country: KR (occurrence: None)
  Receive Date: 20220126
  Receipt Date: 20220321
  Transmission Date: 20220423
  Serious: Yes (Other)
  Sender: FDA-Public Use
  Company Number: KR-ROCHE-2872013

PATIENT
  Age: 72 Year
  Sex: Male
  Weight: 69 kg

DRUGS (17)
  1. ATEZOLIZUMAB [Suspect]
     Active Substance: ATEZOLIZUMAB
     Indication: Hepatocellular carcinoma
     Dosage: SUBSEQUENT DOSE ON 27/NOV/2020, 18/DEC/2020, 11/JAN/2021, 02/FEB/2021, 23/FEB/2021, 16/MAR/2021, 06/
     Route: 041
     Dates: start: 20201106
  2. BEVACIZUMAB [Suspect]
     Active Substance: BEVACIZUMAB
     Indication: Hepatocellular carcinoma
     Dosage: SUBSEQUENT DOSE ON 27/NOV/2020, 18/DEC/2020, 11/JAN/2021, 02/FEB/2021, 23/FEB/2021, 16/MAR/2021, 06/
     Route: 042
     Dates: start: 20201106
  3. BARACLUDE [Concomitant]
     Active Substance: ENTECAVIR
     Indication: Hepatitis B
  4. KANARB [Concomitant]
     Indication: Hypertension
  5. BEECOM [Concomitant]
     Indication: Prophylaxis
  6. MEDILAC DS [Concomitant]
     Indication: Prophylaxis
     Dates: start: 20201221
  7. MEGACE F [Concomitant]
     Indication: Prophylaxis
     Dates: start: 20210201, end: 20210518
  8. TRANSAMIN [Concomitant]
     Active Substance: TRANEXAMIC ACID
     Indication: Prophylaxis
     Dates: start: 20210223
  9. NEXIUM [Concomitant]
     Active Substance: ESOMEPRAZOLE MAGNESIUM
     Indication: Gastrooesophageal reflux disease
     Dates: start: 20210607, end: 20210627
  10. MOSAPRIDE CITRATE [Concomitant]
     Active Substance: MOSAPRIDE CITRATE
     Indication: Gastrooesophageal reflux disease
     Dates: start: 20210708
  11. NORZYME [Concomitant]
     Indication: Prophylaxis
     Dosage: 1000
     Dates: start: 20210708
  12. ESOMEZOL [Concomitant]
     Indication: Gastrooesophageal reflux disease
     Dates: start: 2021
  13. LAMINA-G [Concomitant]
     Indication: Gastric varices
     Dates: start: 20210827
  14. OXYCODONE HYDROCHLORIDE [Concomitant]
     Active Substance: OXYCODONE HYDROCHLORIDE
     Indication: Cancer pain
     Dates: start: 20210809
  15. ALBUMIN HUMAN [Concomitant]
     Active Substance: ALBUMIN HUMAN
     Indication: Hypoalbuminaemia
     Dates: start: 20210906
  16. ALDACTONE [Concomitant]
     Active Substance: SPIRONOLACTONE
  17. FURIX (SOUTH KOREA) [Concomitant]

REACTIONS (5)
  - Ascites [Recovering/Resolving]
  - Diarrhoea [Recovered/Resolved]
  - Hypoalbuminaemia [Recovering/Resolving]
  - Blood urea increased [Recovering/Resolving]
  - Blood bilirubin increased [Recovered/Resolved]

NARRATIVE: CASE EVENT DATE: 20210515
